FAERS Safety Report 4366742-1 (Version None)
Quarter: 2004Q2

REPORT INFORMATION
  Report Type: 
  Country: None (occurrence: None)
  Receive Date: 20040527
  Receipt Date: 20040513
  Transmission Date: 20050107
  Serious: Yes (Hospitalization)
  Sender: FDA-Public Use
  Company Number: CIO04012468

PATIENT
  Sex: Male

DRUGS (1)
  1. NYQUIL COLD/FLU DOXYLAMINE (DOXYLAMINE SUCCINATE 6.25 MG, PSEUDOEPHEDR [Suspect]
     Dosage: LIQCAP,  ORAL
     Route: 048

REACTIONS (2)
  - CEREBROVASCULAR ACCIDENT [None]
  - DIZZINESS [None]
